FAERS Safety Report 6403455-6 (Version None)
Quarter: 2009Q4

REPORT INFORMATION
  Report Type: 
  Country: None (occurrence: None)
  Receive Date: 20091016
  Receipt Date: 20091002
  Transmission Date: 20100525
  Serious: Yes (Life-Threatening, Hospitalization)
  Sender: FDA-Public Use
  Company Number: DE-MYLANLABS-2009S1017532

PATIENT
  Age: 63 Year
  Sex: Female
  Weight: 81 kg

DRUGS (14)
  1. OMEPRAZOLE [Suspect]
     Indication: GASTRIC ULCER
     Route: 048
     Dates: end: 20090711
  2. BICANORM /00049401/ [Suspect]
     Indication: RENAL FAILURE CHRONIC
     Route: 048
     Dates: start: 20060101, end: 20090712
  3. METOPROLOL SUCCINATE [Suspect]
     Indication: HYPERTENSION
     Route: 048
     Dates: end: 20090709
  4. AMLODIPINE [Suspect]
     Indication: HYPERTENSION
     Route: 048
     Dates: end: 20090709
  5. TORASEMIDE [Suspect]
     Indication: RENAL FAILURE CHRONIC
     Route: 048
     Dates: start: 20060101, end: 20090712
  6. XIPAMID [Suspect]
     Indication: HYPERTENSION
     Route: 048
     Dates: start: 20060101, end: 20090712
  7. DEKRISTOL [Concomitant]
     Indication: OSTEOPOROSIS
     Dosage: 20000 IU/WOCHE
     Route: 048
  8. SIMVASTATIN CT [Concomitant]
     Indication: HYPERLIPIDAEMIA
     Route: 048
     Dates: end: 20090709
  9. ASPIRIN [Concomitant]
     Indication: THROMBOSIS PROPHYLAXIS
     Route: 048
  10. ERYFER /00023503/ [Concomitant]
     Indication: IRON DEFICIENCY
     Route: 048
     Dates: end: 20090712
  11. NOVONORM [Concomitant]
     Indication: TYPE 2 DIABETES MELLITUS
     Route: 048
     Dates: end: 20090712
  12. RESTEX [Concomitant]
     Indication: RESTLESS LEGS SYNDROME
     Dosage: 1DF= 100MG LEVODOPA + 25MG BENSERAZIDE
     Route: 048
     Dates: end: 20090712
  13. ARANESP [Concomitant]
     Indication: ANAEMIA OF CHRONIC DISEASE
     Route: 058
     Dates: end: 20090712
  14. MOXONIDINE [Concomitant]
     Indication: HYPERTENSION
     Route: 048
     Dates: end: 20090712

REACTIONS (4)
  - HYPOKALAEMIA [None]
  - HYPONATRAEMIA [None]
  - METABOLIC ACIDOSIS [None]
  - VENTRICULAR FIBRILLATION [None]
